FAERS Safety Report 23975454 (Version 1)
Quarter: 2024Q2

REPORT INFORMATION
  Report Type: Report from Study
  Country: GB (occurrence: GB)
  Receive Date: 20240614
  Receipt Date: 20240614
  Transmission Date: 20240715
  Serious: Yes (Hospitalization)
  Sender: FDA-Public Use
  Company Number: GB-SAMSUNG BIOEPIS-SB-2024-17542

PATIENT
  Age: 16 Year
  Sex: Male

DRUGS (1)
  1. ETANERCEPT [Suspect]
     Active Substance: ETANERCEPT
     Indication: Juvenile idiopathic arthritis
     Route: 058
     Dates: start: 202404

REACTIONS (3)
  - Juvenile idiopathic arthritis [Unknown]
  - Pulmonary embolism [Unknown]
  - Lower respiratory tract infection [Unknown]
